FAERS Safety Report 5314707-5 (Version None)
Quarter: 2007Q2

REPORT INFORMATION
  Report Type: 
  Country: None (occurrence: None)
  Receive Date: 20070426
  Receipt Date: 20070426
  Transmission Date: 20071010
  Serious: Yes (Hospitalization)
  Sender: FDA-Public Use
  Company Number: PRI050412007021

PATIENT
  Age: 79 Year
  Sex: Male
  Weight: 64.4108 kg

DRUGS (12)
  1. CETUXIMAB (BMS) [Suspect]
     Indication: COLON CANCER METASTATIC
     Dosage: 440MG IV QW
     Route: 042
     Dates: start: 20061101, end: 20070306
  2. BEVACIZUMAB (GENETECH) [Suspect]
     Indication: COLON CANCER METASTATIC
     Dosage: 330MG IV Q2W
     Route: 042
     Dates: start: 20061101, end: 20070306
  3. FLUOROURACIL [Concomitant]
  4. LEUCOVORIN CALCIUM [Concomitant]
  5. FOSAMAX [Concomitant]
  6. ZOCOR [Concomitant]
  7. TOPROL-XL [Concomitant]
  8. ASPIRIN [Concomitant]
  9. CENTRUM SILVER [Concomitant]
  10. CALTRATE [Concomitant]
  11. REQUIP [Concomitant]
  12. HUMULIN R [Concomitant]

REACTIONS (7)
  - ATELECTASIS [None]
  - CAPILLARY LEAK SYNDROME [None]
  - CONGESTIVE CARDIOMYOPATHY [None]
  - PLEURAL EFFUSION [None]
  - PULMONARY ARTERIAL PRESSURE INCREASED [None]
  - PULMONARY CONGESTION [None]
  - VOMITING [None]
